FAERS Safety Report 6579789-1 (Version None)
Quarter: 2010Q1

REPORT INFORMATION
  Report Type: 
  Country: None (occurrence: None)
  Receive Date: 20100212
  Receipt Date: 20100203
  Transmission Date: 20100710
  Serious: Yes (Death)
  Sender: FDA-Public Use
  Company Number: US-ROCHE-683814

PATIENT
  Sex: Male

DRUGS (1)
  1. VESANOID [Suspect]
     Indication: CARCINOID TUMOUR OF THE SMALL BOWEL
     Dosage: DOSE: 2X10 MG CAPSULES X 10 DAYS, BID
     Route: 048

REACTIONS (1)
  - DEATH [None]
